FAERS Safety Report 7505471-X (Version None)
Quarter: 2011Q2

REPORT INFORMATION
  Report Type: 
  Country: None (occurrence: None)
  Receive Date: 20110526
  Receipt Date: 20110523
  Transmission Date: 20111010
  Serious: Yes (Other)
  Sender: FDA-Public Use
  Company Number: US-PFIZER INC-2011112260

PATIENT
  Age: 45 Year
  Sex: Male
  Weight: 83.9 kg

DRUGS (1)
  1. ARTHROTEC [Suspect]
     Dosage: 200UG/75MG, 2X/DAY

REACTIONS (1)
  - GASTROINTESTINAL HAEMORRHAGE [None]
